FAERS Safety Report 4744657-4 (Version None)
Quarter: 2005Q3

REPORT INFORMATION
  Report Type: 
  Country: None (occurrence: None)
  Receive Date: 20050815
  Receipt Date: 20050804
  Transmission Date: 20060218
  Serious: Yes (Other)
  Sender: FDA-Public Use
  Company Number: GB-JNJFOC-20050801495

PATIENT
  Sex: Female
  Weight: 77 kg

DRUGS (9)
  1. REMICADE [Suspect]
     Indication: RHEUMATOID ARTHRITIS
     Route: 042
  2. METHOTREXATE [Concomitant]
     Route: 048
  3. FOLIC ACID [Concomitant]
     Route: 065
  4. PREDNISOLONE [Concomitant]
     Route: 065
  5. MOBIC [Concomitant]
     Route: 065
  6. CODEINE PHOSPHATE [Concomitant]
     Route: 065
  7. VENTOLIN [Concomitant]
     Indication: ASTHMA
     Route: 055
  8. METFORMIN [Concomitant]
     Route: 065
  9. BECOTIDE [Concomitant]
     Indication: ASTHMA
     Route: 055

REACTIONS (1)
  - DIABETES MELLITUS NON-INSULIN-DEPENDENT [None]
